FAERS Safety Report 11481074 (Version 2)
Quarter: 2015Q4

REPORT INFORMATION
  Report Type: Spontaneous
  Country: US (occurrence: US)
  Receive Date: 20150909
  Receipt Date: 20151009
  Transmission Date: 20160304
  Serious: No
  Sender: FDA-Public Use
  Company Number: US-GLAXOSMITHKLINE-US2015128820

PATIENT
  Age: 75 Year
  Sex: Female

DRUGS (8)
  1. LANTUS [Concomitant]
     Active Substance: INSULIN GLARGINE
  2. BYSTOLIC [Concomitant]
     Active Substance: NEBIVOLOL HYDROCHLORIDE
  3. NORVASC [Concomitant]
     Active Substance: AMLODIPINE BESYLATE
  4. ARNUITY ELLIPTA [Suspect]
     Active Substance: FLUTICASONE FUROATE
     Indication: COUGH
     Dosage: 1 PUFF(S), QD
     Route: 055
     Dates: start: 20150902
  5. LIPITOR [Concomitant]
     Active Substance: ATORVASTATIN CALCIUM
  6. NOVOLOG [Concomitant]
     Active Substance: INSULIN ASPART
  7. PRANDIN (REPAGLINIDA) [Concomitant]
  8. CHLORPHENIRAMINE + HYDROCODONE [Suspect]
     Active Substance: CHLORPHENIRAMINE HYDROCHLORIDE\HYDROCODONE
     Indication: COUGH
     Dosage: 5 MG, BID
     Route: 048
     Dates: start: 20150902

REACTIONS (5)
  - Cough [Unknown]
  - Pruritus [Not Recovered/Not Resolved]
  - Blood glucose decreased [Recovered/Resolved]
  - Hypersensitivity [Unknown]
  - Sinus disorder [Unknown]

NARRATIVE: CASE EVENT DATE: 20150903
